FAERS Safety Report 7919218-6 (Version None)
Quarter: 2011Q4

REPORT INFORMATION
  Report Type: 
  Country: None (occurrence: None)
  Receive Date: 20111117
  Receipt Date: 20111110
  Transmission Date: 20120403
  Serious: Yes (Hospitalization, Other)
  Sender: FDA-Public Use
  Company Number: US-AMGEN-USASP2011059228

PATIENT
  Age: 79 Year
  Sex: Male

DRUGS (7)
  1. ULTRAM ER [Concomitant]
  2. LYRICA [Concomitant]
     Dosage: UNK
  3. ENBREL [Suspect]
     Indication: RHEUMATOID ARTHRITIS
     Dosage: 50 MG, QWK
     Dates: start: 20070809
  4. POTASSIUM [Concomitant]
     Dosage: UNK
  5. OMEPRAZOLE [Concomitant]
  6. FUROSEMIDE [Concomitant]
     Dosage: UNK
  7. NUVIGIL [Concomitant]
     Dates: start: 20110901

REACTIONS (3)
  - CHOLELITHIASIS [None]
  - BODY TEMPERATURE INCREASED [None]
  - SOMNOLENCE [None]
